FAERS Safety Report 8515902-4 (Version None)
Quarter: 2012Q3

REPORT INFORMATION
  Report Type: 
  Country: None (occurrence: None)
  Receive Date: 20120717
  Receipt Date: 20120716
  Transmission Date: 20120928
  Serious: Yes (Hospitalization)
  Sender: FDA-Public Use
  Company Number: PHHY2010IT68955

PATIENT
  Sex: Male

DRUGS (7)
  1. AFINITOR [Suspect]
     Indication: RENAL CELL CARCINOMA
     Dosage: 10 MG, DAILY
     Route: 048
     Dates: start: 20100728, end: 20100923
  2. NIFEDIPINE [Concomitant]
     Indication: HYPERTENSION
     Dosage: 30 MG
  3. ASPIRIN [Concomitant]
     Indication: HYPERTENSION
     Dosage: 100 MG
  4. LANSOPRAZOLE [Concomitant]
     Indication: GASTRITIS
     Dosage: 15 MG
  5. URSODIOL [Concomitant]
     Indication: CHOLECYSTECTOMY
     Dosage: 450 MG
  6. EPROSARTAN MESILATE [Concomitant]
     Indication: HYPERTENSION
     Dosage: 600 MG
  7. DOXAZOSIN MESYLATE [Concomitant]
     Indication: HYPERTENSION
     Dosage: 2 MG

REACTIONS (4)
  - DYSPNOEA [None]
  - PO2 DECREASED [None]
  - PYREXIA [None]
  - LUNG DISORDER [None]
